FAERS Safety Report 15330600 (Version 1)
Quarter: 2018Q3

REPORT INFORMATION
  Report Type: Report from Study
  Country: GB (occurrence: GB)
  Receive Date: 20180829
  Receipt Date: 20180829
  Transmission Date: 20181010
  Serious: Yes (Other)
  Sender: FDA-Public Use
  Company Number: GB-PFIZER INC-2018345611

PATIENT

DRUGS (1)
  1. CLINDAMYCIN PHOSPHATE. [Suspect]
     Active Substance: CLINDAMYCIN PHOSPHATE
     Dosage: 600 MG, 4X/DAY
     Route: 063

REACTIONS (3)
  - Enterocolitis [Recovered/Resolved]
  - Maternal exposure during breast feeding [Unknown]
  - Haematochezia [Recovered/Resolved]
